FAERS Safety Report 16201162 (Version 1)
Quarter: 2019Q2

REPORT INFORMATION
  Report Type: Spontaneous
  Country: US (occurrence: US)
  Receive Date: 20190416
  Receipt Date: 20190416
  Transmission Date: 20190711
  Serious: No
  Sender: FDA-Public Use
  Company Number: US-ELI_LILLY_AND_COMPANY-US201904007082

PATIENT
  Sex: Female

DRUGS (2)
  1. HUMULIN R [Suspect]
     Active Substance: INSULIN HUMAN
     Indication: PRODUCT USED FOR UNKNOWN INDICATION
     Dosage: UNK, (5 TIMES A YEAR)
     Route: 065
  2. CORTIZONE [HYDROCORTISONE] [Suspect]
     Active Substance: HYDROCORTISONE
     Indication: ARTHROPATHY
     Dosage: UNK, UNKNOWN
     Route: 065
     Dates: start: 2004

REACTIONS (1)
  - Blood glucose increased [Not Recovered/Not Resolved]

NARRATIVE: CASE EVENT DATE: 20190410
